FAERS Safety Report 13078460 (Version 1)
Quarter: 2017Q1

REPORT INFORMATION
  Report Type: Spontaneous
  Country: NL (occurrence: NL)
  Receive Date: 20170102
  Receipt Date: 20170102
  Transmission Date: 20170428
  Serious: Yes (Other)
  Sender: FDA-Public Use
  Company Number: PHHY2016NL175034

PATIENT
  Age: 33 Year
  Sex: Female

DRUGS (3)
  1. ALCOHOL. [Suspect]
     Active Substance: ALCOHOL
     Indication: PRODUCT USED FOR UNKNOWN INDICATION
     Route: 065
  2. PHENYLBUTAZONE [Suspect]
     Active Substance: PHENYLBUTAZONE
     Indication: PRODUCT USED FOR UNKNOWN INDICATION
     Dosage: 12 G, UNK
     Route: 065
  3. MEDROXYPROGESTERONE ACETATE. [Concomitant]
     Active Substance: MEDROXYPROGESTERONE ACETATE
     Indication: PRODUCT USED FOR UNKNOWN INDICATION
     Dosage: QUARTERLY INJECTIONS
     Route: 065

REACTIONS (9)
  - Liver injury [Unknown]
  - Dyspnoea [Unknown]
  - Loss of consciousness [Unknown]
  - Swelling face [Unknown]
  - Eyelid oedema [Unknown]
  - Overdose [Unknown]
  - Renal disorder [Unknown]
  - Oliguria [Unknown]
  - Vomiting [Unknown]
